FAERS Safety Report 17008439 (Version 1)
Quarter: 2019Q4

REPORT INFORMATION
  Report Type: Spontaneous
  Country: CA (occurrence: CA)
  Receive Date: 20191108
  Receipt Date: 20191108
  Transmission Date: 20200122
  Serious: Yes (Other)
  Sender: FDA-Public Use
  Company Number: CA-SA-2019SA306673

PATIENT
  Age: 48 Year
  Sex: Male

DRUGS (3)
  1. METHOTREXATE. [Suspect]
     Active Substance: METHOTREXATE
  2. SULFASALAZINE. [Suspect]
     Active Substance: SULFASALAZINE
  3. ARAVA [Suspect]
     Active Substance: LEFLUNOMIDE

REACTIONS (4)
  - Contraindicated product administered [Unknown]
  - Drug intolerance [Unknown]
  - Hepatic steatosis [Unknown]
  - Hepatic fibrosis [Unknown]

NARRATIVE: CASE EVENT DATE: 2008
